FAERS Safety Report 16444688 (Version 2)
Quarter: 2019Q3

REPORT INFORMATION
  Report Type: Report from Study
  Country: EE (occurrence: EE)
  Receive Date: 20190618
  Receipt Date: 20190701
  Transmission Date: 20191004
  Serious: Yes (Other)
  Sender: FDA-Public Use
  Company Number: PHHY2018EE181633

PATIENT
  Age: 39 Year
  Sex: Male

DRUGS (4)
  1. COSENTYX [Suspect]
     Active Substance: SECUKINUMAB
     Dosage: 150 MG, UNK
     Route: 065
     Dates: start: 20181121
  2. COSENTYX [Suspect]
     Active Substance: SECUKINUMAB
     Indication: PSORIATIC ARTHROPATHY
     Dosage: 150 MG, UNK
     Route: 065
     Dates: start: 20180119, end: 20180215
  3. COSENTYX [Suspect]
     Active Substance: SECUKINUMAB
     Dosage: 150 MG, UNK
     Route: 065
     Dates: start: 20180216, end: 20181008
  4. COSENTYX [Suspect]
     Active Substance: SECUKINUMAB
     Dosage: 150 UNK, UNK
     Route: 065
     Dates: start: 20181009, end: 20181120

REACTIONS (6)
  - Diarrhoea [Recovered/Resolved]
  - Hypertension [Recovering/Resolving]
  - Psoriatic arthropathy [Not Recovered/Not Resolved]
  - Calculus urethral [Recovered/Resolved]
  - Nephrolithiasis [Not Recovered/Not Resolved]
  - Upper respiratory tract infection [Recovered/Resolved]

NARRATIVE: CASE EVENT DATE: 20181103
